FAERS Safety Report 10579404 (Version 4)
Quarter: 2015Q1

REPORT INFORMATION
  Report Type: Spontaneous
  Country: JP (occurrence: JP)
  Receive Date: 20141112
  Receipt Date: 20150130
  Transmission Date: 20150720
  Serious: Yes (Life-Threatening, Other)
  Sender: FDA-Public Use
  Company Number: JP-BRISTOL-MYERS SQUIBB COMPANY-21578158

PATIENT
  Age: 79 Year
  Sex: Male
  Weight: 74.5 kg

DRUGS (18)
  1. FUROSEMIDE. [Concomitant]
     Active Substance: FUROSEMIDE
     Indication: HYPERTENSION
     Dosage: UNK
     Route: 048
     Dates: start: 20141010, end: 20141028
  2. ELIQUIS [Suspect]
     Active Substance: APIXABAN
     Indication: CEREBROVASCULAR ACCIDENT PROPHYLAXIS
     Dosage: TABS
     Route: 048
     Dates: start: 20141016, end: 20141028
  3. MAINTATE [Concomitant]
     Active Substance: BISOPROLOL FUMARATE
     Indication: ATRIAL FIBRILLATION
     Dosage: UNK
     Route: 065
     Dates: start: 20141010
  4. SULBACILLIN [Concomitant]
     Active Substance: AMPICILLIN SODIUM\SULBACTAM SODIUM
     Indication: PRODUCT USED FOR UNKNOWN INDICATION
     Route: 042
  5. MEROPENEM. [Concomitant]
     Active Substance: MEROPENEM
     Indication: PRODUCT USED FOR UNKNOWN INDICATION
     Route: 041
  6. ZOSYN [Suspect]
     Active Substance: PIPERACILLIN SODIUM\TAZOBACTAM SODIUM
     Indication: PNEUMONIA ASPIRATION
     Dosage: 4.5 G, TID
     Route: 041
     Dates: start: 20141020, end: 20141028
  7. VASOLAN                            /00014302/ [Suspect]
     Active Substance: VERAPAMIL HYDROCHLORIDE
     Indication: ATRIAL FIBRILLATION
     Dosage: 20 MG, TID
     Route: 048
     Dates: start: 20141021
  8. ALDACTONE [Suspect]
     Active Substance: SPIRONOLACTONE
     Indication: HYPERTENSION
     Dosage: 2.5 MG, QD
     Route: 048
     Dates: start: 20141022, end: 20141028
  9. MUCOSOLVAN [Suspect]
     Active Substance: AMBROXOL\CLENBUTEROL
     Indication: PNEUMONIA ASPIRATION
     Dosage: 4.5 MG, TID
     Route: 048
     Dates: start: 20141021, end: 20141028
  10. AVAPRO [Concomitant]
     Active Substance: IRBESARTAN
     Indication: HYPERTENSION
     Dosage: UNK
     Route: 048
     Dates: start: 20141010, end: 20141028
  11. ASPARA POTASSIUM [Concomitant]
     Active Substance: POTASSIUM ASPARTATE
     Indication: PRODUCT USED FOR UNKNOWN INDICATION
     Route: 048
  12. RISPERIDONE. [Suspect]
     Active Substance: RISPERIDONE
     Indication: CEREBRAL HAEMORRHAGE
     Dosage: 1 MG, UNK
     Route: 048
     Dates: start: 20141022, end: 20141028
  13. AMLODIPINE BESILATE [Suspect]
     Active Substance: AMLODIPINE BESYLATE
     Indication: HYPERTENSION
     Dosage: 5 MG, QD
     Route: 048
     Dates: start: 20141010, end: 20141028
  14. MAGLAX [Concomitant]
     Active Substance: MAGNESIUM OXIDE
     Indication: PRODUCT USED FOR UNKNOWN INDICATION
     Route: 065
  15. FEBURIC [Concomitant]
     Active Substance: FEBUXOSTAT
     Indication: HYPERURICAEMIA
     Dosage: UNK
     Route: 048
     Dates: start: 20141010, end: 20141028
  16. SYMMETREL [Concomitant]
     Active Substance: AMANTADINE HYDROCHLORIDE
     Indication: CEREBRAL HAEMORRHAGE
     Dosage: 100 UNK, UNK
     Route: 048
     Dates: start: 20141016, end: 20141028
  17. TAKEPRON [Concomitant]
     Active Substance: LANSOPRAZOLE
     Indication: PRODUCT USED FOR UNKNOWN INDICATION
     Route: 048
  18. SEROQUEL [Concomitant]
     Active Substance: QUETIAPINE FUMARATE
     Indication: PRODUCT USED FOR UNKNOWN INDICATION
     Route: 048

REACTIONS (1)
  - Interstitial lung disease [Recovering/Resolving]

NARRATIVE: CASE EVENT DATE: 20141028
